FAERS Safety Report 20654057 (Version 8)
Quarter: 2022Q3

REPORT INFORMATION
  Report Type: Other
  Country: JP (occurrence: JP)
  Receive Date: 20220330
  Receipt Date: 20220907
  Transmission Date: 20221027
  Serious: Yes (Death, Hospitalization, Other)
  Sender: FDA-Public Use
  Company Number: JP-CHUGAI-2022011095

PATIENT
  Age: 81 Year
  Sex: Female
  Weight: 61.5 kg

DRUGS (5)
  1. POLATUZUMAB VEDOTIN [Suspect]
     Active Substance: POLATUZUMAB VEDOTIN
     Indication: Diffuse large B-cell lymphoma
     Dosage: 1.8 MILLIGRAM/KILOGRAM, ONCE/3WEEKS
     Route: 041
     Dates: start: 20211028
  2. BENDAMUSTINE HYDROCHLORIDE [Suspect]
     Active Substance: BENDAMUSTINE HYDROCHLORIDE
     Indication: Diffuse large B-cell lymphoma
     Dosage: 90 MILLIGRAM/SQ. METER, ONCE/3WEEKS
     Route: 041
  3. RITUXIMAB [Suspect]
     Active Substance: RITUXIMAB
     Indication: Diffuse large B-cell lymphoma
     Dosage: 375 MILLIGRAM/SQ. METER, ONCE/3WEEKS
     Route: 041
  4. ACYCLOVIR [Concomitant]
     Active Substance: ACYCLOVIR
     Indication: Infection prophylaxis
     Dosage: UNK
     Route: 065
     Dates: end: 20220605
  5. SULFAMETHOXAZOLE\TRIMETHOPRIM [Concomitant]
     Active Substance: SULFAMETHOXAZOLE\TRIMETHOPRIM
     Indication: Infection prophylaxis
     Dosage: UNK
     Route: 065
     Dates: start: 20211101, end: 20220602

REACTIONS (12)
  - Cytomegalovirus enterocolitis [Not Recovered/Not Resolved]
  - Pneumonia cytomegaloviral [Fatal]
  - Lower gastrointestinal haemorrhage [Not Recovered/Not Resolved]
  - Embolism venous [Not Recovered/Not Resolved]
  - Lymphopenia [Not Recovered/Not Resolved]
  - Anaemia [Not Recovered/Not Resolved]
  - Oropharyngeal candidiasis [Recovered/Resolved]
  - Pancytopenia [Unknown]
  - Tongue ulceration [Not Recovered/Not Resolved]
  - Febrile neutropenia [Recovering/Resolving]
  - Neutropenia [Recovering/Resolving]
  - Thrombocytopenia [Recovered/Resolved]

NARRATIVE: CASE EVENT DATE: 20211220
